FAERS Safety Report 19167597 (Version 1)
Quarter: 2021Q2

REPORT INFORMATION
  Report Type: Other
  Country: CA (occurrence: CA)
  Receive Date: 20210422
  Receipt Date: 20210422
  Transmission Date: 20210717
  Serious: Yes (Other)
  Sender: FDA-Public Use
  Company Number: CA-ROCHE-2558557

PATIENT
  Age: 80 Year
  Sex: Male
  Weight: 72.6 kg

DRUGS (19)
  1. FOSAVANCE [Concomitant]
     Active Substance: ALENDRONATE SODIUM\CHOLECALCIFEROL
  2. PREDNISONE. [Concomitant]
     Active Substance: PREDNISONE
  3. CALCIUM [Concomitant]
     Active Substance: CALCIUM
  4. EVOLOCUMAB [Concomitant]
     Active Substance: EVOLOCUMAB
  5. SEPTRA [Concomitant]
     Active Substance: SULFAMETHOXAZOLE\TRIMETHOPRIM
  6. RITUXAN [Suspect]
     Active Substance: RITUXIMAB
     Indication: GRANULOMATOSIS WITH POLYANGIITIS
     Route: 042
     Dates: start: 20100310, end: 20100331
  7. RITUXAN [Suspect]
     Active Substance: RITUXIMAB
     Dosage: SINGLE INFUSIONS
     Route: 042
     Dates: start: 20110323, end: 20151125
  8. RITUXAN [Suspect]
     Active Substance: RITUXIMAB
     Route: 042
     Dates: start: 20160128, end: 20160210
  9. ACETAMINOPHEN. [Concomitant]
     Active Substance: ACETAMINOPHEN
     Indication: PREMEDICATION
     Route: 048
     Dates: start: 20100310
  10. RAMIPRIL. [Concomitant]
     Active Substance: RAMIPRIL
     Indication: BLOOD PRESSURE ABNORMAL
  11. CLOPIDOGREL BISULFATE. [Concomitant]
     Active Substance: CLOPIDOGREL BISULFATE
  12. EZETIMIBE. [Concomitant]
     Active Substance: EZETIMIBE
  13. JARDIANCE [Concomitant]
     Active Substance: EMPAGLIFLOZIN
  14. RITUXAN [Suspect]
     Active Substance: RITUXIMAB
     Dosage: DAY 1,15
     Route: 042
     Dates: start: 20200311
  15. METHYLPREDNISOLONE. [Concomitant]
     Active Substance: METHYLPREDNISOLONE
     Indication: PREMEDICATION
     Route: 042
  16. RABEPRAZOLE [Concomitant]
     Active Substance: RABEPRAZOLE
     Dates: start: 2021
  17. RITUXAN [Suspect]
     Active Substance: RITUXIMAB
     Dosage: NO PIRS RECEIVED TO CONFIRM DOSE
     Route: 042
     Dates: start: 20190128, end: 20190220
  18. APIXABAN [Concomitant]
     Active Substance: APIXABAN
  19. DIPHENHYDRAMINE HCL [Concomitant]
     Active Substance: DIPHENHYDRAMINE HYDROCHLORIDE
     Indication: PREMEDICATION
     Route: 048
     Dates: start: 20100310

REACTIONS (11)
  - Blood pressure systolic abnormal [Unknown]
  - Hypertension [Not Recovered/Not Resolved]
  - Blood pressure systolic increased [Unknown]
  - Oxygen saturation decreased [Unknown]
  - Blood pressure increased [Unknown]
  - Cardiac disorder [Unknown]
  - Arteriosclerosis [Unknown]
  - Dyspnoea [Unknown]
  - Off label use [Unknown]
  - Heart rate increased [Unknown]
  - Blood pressure fluctuation [Unknown]

NARRATIVE: CASE EVENT DATE: 2019
